FAERS Safety Report 4737970-8 (Version None)
Quarter: 2005Q3

REPORT INFORMATION
  Report Type: 
  Country: None (occurrence: None)
  Receive Date: 20050809
  Receipt Date: 20050728
  Transmission Date: 20060218
  Serious: Yes (Disabling)
  Sender: FDA-Public Use
  Company Number: GBWYE866128JUL05

PATIENT
  Age: 37 Year
  Sex: Female
  Weight: 64 kg

DRUGS (10)
  1. ENBREL [Suspect]
     Indication: RHEUMATOID ARTHRITIS
     Route: 058
     Dates: start: 20050530, end: 20050627
  2. CELEBREX [Concomitant]
  3. TRAMADOL HCL [Concomitant]
  4. PARACETAMOL [Concomitant]
  5. ISONIAZID [Concomitant]
     Dates: start: 20050316
  6. PYRIDOXINE HCL [Concomitant]
     Dosage: 10MG FREQUENCY UNKNOWN
     Dates: start: 20050316
  7. TACROLIMUS [Concomitant]
  8. CLOPIDOGREL BISULFATE [Concomitant]
  9. E45 [Concomitant]
  10. FLUOCINOLONE ACETONIDE [Concomitant]

REACTIONS (4)
  - CONFUSIONAL STATE [None]
  - DISORIENTATION [None]
  - DIZZINESS [None]
  - NAUSEA [None]
